FAERS Safety Report 4678480-6 (Version None)
Quarter: 2005Q2

REPORT INFORMATION
  Report Type: 
  Country: None (occurrence: None)
  Receive Date: 20050531
  Receipt Date: 20050531
  Transmission Date: 20051028
  Serious: Yes (Death)
  Sender: FDA-Public Use
  Company Number: None

PATIENT
  Sex: Male

DRUGS (3)
  1. ZOLOFT [Suspect]
     Indication: DEPRESSION
     Dosage: 50 MG Q DAILY
     Dates: start: 20050410, end: 20050424
  2. ZOLOFT [Suspect]
     Indication: PROPHYLAXIS
     Dosage: 50 MG Q DAILY
     Dates: start: 20050410, end: 20050424
  3. PLACEBO [Suspect]

REACTIONS (5)
  - DRUG DOSE OMISSION [None]
  - FEELING ABNORMAL [None]
  - GRAFT VERSUS HOST DISEASE [None]
  - MYELOPROLIFERATIVE DISORDER [None]
  - SEPSIS [None]
